FAERS Safety Report 15010231 (Version 1)
Quarter: 2018Q2

REPORT INFORMATION
  Report Type: Spontaneous
  Country: US (occurrence: US)
  Receive Date: 20180521
  Receipt Date: 20180521
  Transmission Date: 20180711
  Serious: Yes (Hospitalization)
  Sender: FDA-Public Use
  Company Number: None

PATIENT
  Age: 70 Year
  Sex: Female

DRUGS (2)
  1. WARFARIN [Suspect]
     Active Substance: WARFARIN
     Route: 048
  2. HEPARIN [Suspect]
     Active Substance: HEPARIN SODIUM
     Indication: ANTICOAGULANT THERAPY
     Dosage: OTHER DOSE:7.4 U/KG/HR;OTHER FREQUENCY:CONTINUOUS;?
     Route: 042
     Dates: start: 20180123

REACTIONS (7)
  - Leukocytosis [None]
  - Ecchymosis [None]
  - Breast swelling [None]
  - International normalised ratio increased [None]
  - Heparin-induced thrombocytopenia [None]
  - Skin necrosis [None]
  - Tongue disorder [None]

NARRATIVE: CASE EVENT DATE: 20180123
